FAERS Safety Report 6278022-8 (Version None)
Quarter: 2009Q3

REPORT INFORMATION
  Report Type: 
  Country: None (occurrence: None)
  Receive Date: 20090722
  Receipt Date: 20090622
  Transmission Date: 20100115
  Serious: Yes (Other)
  Sender: FDA-Public Use
  Company Number: PHHY2009GT24809

PATIENT
  Age: 68 Year
  Sex: Female

DRUGS (4)
  1. DIOVAN HCT [Suspect]
     Indication: HYPERTENSION
     Dosage: 1TABLET DAILY
     Route: 048
  2. EUTIROX [Concomitant]
     Dosage: 100 UG DAILY
  3. NEBILET [Concomitant]
     Dosage: 5 MG, UNK
     Route: 048
  4. ASPIRIN [Concomitant]
     Dosage: ONE TABLET PER DAY
     Route: 048

REACTIONS (3)
  - DIZZINESS [None]
  - HYPOACUSIS [None]
  - TYMPANIC MEMBRANE PERFORATION [None]
